FAERS Safety Report 15238197 (Version 1)
Quarter: 2018Q3

REPORT INFORMATION
  Report Type: Spontaneous
  Country: CZ (occurrence: CZ)
  Receive Date: 20180803
  Receipt Date: 20180803
  Transmission Date: 20181010
  Serious: Yes (Hospitalization, Other)
  Sender: FDA-Public Use
  Company Number: CZ-MYLANLABS-2018M1056898

PATIENT
  Age: 80 Year
  Sex: Female

DRUGS (2)
  1. WARFARIN [Suspect]
     Active Substance: WARFARIN
     Indication: ANTICOAGULANT THERAPY
     Route: 065
  2. WARFARIN [Suspect]
     Active Substance: WARFARIN
     Indication: ATRIAL FIBRILLATION

REACTIONS (8)
  - Haematoma [Unknown]
  - Anaemia [Unknown]
  - Erysipelas [Unknown]
  - Abdominal wall haematoma [Unknown]
  - International normalised ratio increased [Unknown]
  - Bladder perforation [Unknown]
  - Acute kidney injury [Unknown]
  - Haematuria [Unknown]
